FAERS Safety Report 15200482 (Version 1)
Quarter: 2018Q4

REPORT INFORMATION
  Report Type: Spontaneous
  Country: FR (occurrence: FR)
  Receive Date: 20180726
  Receipt Date: 20180726
  Transmission Date: 20190204
  Serious: Yes (Hospitalization)
  Sender: FDA-Public Use
  Company Number: FR-TEVA-2018-FR-929780

PATIENT
  Age: 28 Year
  Sex: Male
  Weight: 125 kg

DRUGS (3)
  1. ZOPICLONE EG 7,5 MG, COMPRIM? PELLICUL? S?CABLE [Suspect]
     Active Substance: ZOPICLONE
     Indication: INSOMNIA
     Route: 065
     Dates: start: 20180528, end: 20180528
  2. DIAZEPAM. [Suspect]
     Active Substance: DIAZEPAM
     Indication: ANXIETY
     Route: 065
     Dates: start: 20180528, end: 20180528
  3. TERCIAN 25 MG, COMPRIM? PELLICUL? S?CABLE [Suspect]
     Active Substance: CYAMEMAZINE
     Indication: SUICIDE ATTEMPT
     Route: 048
     Dates: start: 20180528, end: 20180528

REACTIONS (2)
  - Somnolence [Recovered/Resolved]
  - Tachycardia [Recovered/Resolved]

NARRATIVE: CASE EVENT DATE: 20180528
